FAERS Safety Report 9826825 (Version 1)
Quarter: 2013Q4

REPORT INFORMATION
  Report Type: Spontaneous
  Country: US (occurrence: None)
  Receive Date: 20131112
  Receipt Date: 20131112
  Transmission Date: 20140711
  Serious: No
  Sender: FDA-Public Use
  Company Number: US-012619

PATIENT
  Age: 51 Year
  Sex: Female
  Weight: 73.94 kg

DRUGS (4)
  1. PICO-SALAX [Suspect]
     Indication: BOWEL PREPARATION
     Dosage: PATIENT ONLY TOOK FIRST DOSE AT 2PM AND SCHEDULED FOR SECOND DOSE AT 7PM SAME DAY ORAL
     Dates: start: 20130807
  2. MIRALAX [Concomitant]
  3. DIOVAN [Concomitant]
  4. ZETIA [Concomitant]

REACTIONS (1)
  - Treatment noncompliance [None]
